FAERS Safety Report 5224996-3 (Version None)
Quarter: 2007Q1

REPORT INFORMATION
  Report Type: 
  Country: None (occurrence: None)
  Receive Date: 20070126
  Receipt Date: 20070115
  Transmission Date: 20070707
  Serious: Yes (Hospitalization, Other)
  Sender: FDA-Public Use
  Company Number: FRWYE199617JAN07

PATIENT
  Age: 51 Year
  Sex: Female

DRUGS (2)
  1. EFFEXOR XR [Suspect]
     Dosage: OVERDOSE AMOUNT:  1125 MG
     Route: 048
     Dates: start: 20040801, end: 20040801
  2. LEVOTHYROXINE SODIUM [Suspect]
     Dosage: OVERDOSE AMOUNT: 3:25 MG
     Route: 048
     Dates: start: 20040801, end: 20040801

REACTIONS (13)
  - BUNDLE BRANCH BLOCK LEFT [None]
  - CARDIAC ARREST [None]
  - COMA [None]
  - CONVULSION [None]
  - CYANOSIS [None]
  - ELECTROCARDIOGRAM QRS COMPLEX PROLONGED [None]
  - HYPERTHERMIA [None]
  - HYPERTONIA [None]
  - METABOLIC ACIDOSIS [None]
  - MULTIPLE DRUG OVERDOSE [None]
  - RHABDOMYOLYSIS [None]
  - TREMOR [None]
  - VENTRICULAR TACHYCARDIA [None]
